FAERS Safety Report 19995746 (Version 1)
Quarter: 2021Q4

REPORT INFORMATION
  Report Type: Spontaneous
  Country: US (occurrence: US)
  Receive Date: 20211025
  Receipt Date: 20211025
  Transmission Date: 20220303
  Serious: No
  Sender: FDA-Public Use
  Company Number: US-PFIZER INC-202101276028

PATIENT
  Age: 64 Year
  Sex: Male
  Weight: 102.97 kg

DRUGS (1)
  1. CAVERJECT IMPULSE [Suspect]
     Active Substance: ALPROSTADIL
     Dosage: 50 UG
     Dates: start: 20210924

REACTIONS (1)
  - Drug effect less than expected [Unknown]
